FAERS Safety Report 6077075-X (Version None)
Quarter: 2009Q1

REPORT INFORMATION
  Report Type: 
  Country: None (occurrence: None)
  Receive Date: 20090210
  Receipt Date: 20090129
  Transmission Date: 20090719
  Serious: Yes (Other)
  Sender: FDA-Public Use
  Company Number: 2008SP025158

PATIENT
  Age: 61 Year
  Sex: Female
  Weight: 54 kg

DRUGS (2)
  1. DESLORATADINE [Suspect]
     Indication: CONJUNCTIVITIS ALLERGIC
     Dosage: 5 MG; ONCE; PO
     Route: 048
     Dates: start: 20080601, end: 20080601
  2. ALLERGOPOS EYE DROPS [Concomitant]

REACTIONS (3)
  - CARDIOVASCULAR DISORDER [None]
  - DRUG HYPERSENSITIVITY [None]
  - PARAESTHESIA ORAL [None]
